FAERS Safety Report 6195073-2 (Version None)
Quarter: 2009Q2

REPORT INFORMATION
  Report Type: 
  Country: None (occurrence: None)
  Receive Date: 20090519
  Receipt Date: 20090511
  Transmission Date: 20091009
  Serious: Yes (Hospitalization, Other)
  Sender: FDA-Public Use
  Company Number: US-ABBOTT-09P-163-0572570-00

PATIENT
  Sex: Female
  Weight: 61.29 kg

DRUGS (3)
  1. SYNTHROID [Suspect]
     Indication: HYPOTHYROIDISM
     Dates: start: 19720101
  2. EFFEXOR [Concomitant]
     Indication: PAIN MANAGEMENT
  3. DIAZIDE [Concomitant]
     Indication: FLUID RETENTION

REACTIONS (6)
  - ASTHENIA [None]
  - CHEST X-RAY ABNORMAL [None]
  - FATIGUE [None]
  - FEELING ABNORMAL [None]
  - SARCOIDOSIS [None]
  - SENSORY DISTURBANCE [None]
